FAERS Safety Report 14659113 (Version 2)
Quarter: 2018Q3

REPORT INFORMATION
  Report Type: Spontaneous
  Country: GB (occurrence: GB)
  Receive Date: 20180320
  Receipt Date: 20180829
  Transmission Date: 20181010
  Serious: Yes (Disabling, Other)
  Sender: FDA-Public Use
  Company Number: GB-PFIZER INC-2018106642

PATIENT
  Age: 40 Year
  Sex: Female
  Weight: 51 kg

DRUGS (2)
  1. LYRICA [Suspect]
     Active Substance: PREGABALIN
     Indication: FIBROMYALGIA
     Dosage: 75 MG, UNK
     Route: 048
     Dates: start: 2012
  2. CERELLE [Concomitant]
     Active Substance: DESOGESTREL
     Dosage: UNK

REACTIONS (27)
  - Hypoacusis [Not Recovered/Not Resolved]
  - Pruritus [Unknown]
  - Photosensitivity reaction [Not Recovered/Not Resolved]
  - Hypertonic bladder [Not Recovered/Not Resolved]
  - Product use in unapproved indication [Unknown]
  - Menstrual disorder [Not Recovered/Not Resolved]
  - Hot flush [Not Recovered/Not Resolved]
  - Fatigue [Unknown]
  - Feeling abnormal [Unknown]
  - Diplopia [Not Recovered/Not Resolved]
  - Haematochezia [Not Recovered/Not Resolved]
  - Nausea [Unknown]
  - Withdrawal syndrome [Unknown]
  - Ear discomfort [Unknown]
  - Nerve injury [Not Recovered/Not Resolved]
  - Gastrooesophageal reflux disease [Not Recovered/Not Resolved]
  - Photophobia [Unknown]
  - Irritability [Not Recovered/Not Resolved]
  - Ear pain [Not Recovered/Not Resolved]
  - Mood swings [Not Recovered/Not Resolved]
  - Eye movement disorder [Recovering/Resolving]
  - Affect lability [Unknown]
  - Disturbance in attention [Unknown]
  - Influenza like illness [Unknown]
  - Change of bowel habit [Not Recovered/Not Resolved]
  - Peripheral swelling [Recovering/Resolving]
  - Chills [Not Recovered/Not Resolved]

NARRATIVE: CASE EVENT DATE: 2012
